FAERS Safety Report 4840492-7 (Version None)
Quarter: 2005Q4

REPORT INFORMATION
  Report Type: 
  Country: None (occurrence: None)
  Receive Date: 20051130
  Receipt Date: 20050819
  Transmission Date: 20060501
  Serious: No
  Sender: FDA-Public Use
  Company Number: US-BRISTOL-MYERS SQUIBB COMPANY-13084439

PATIENT
  Age: 76 Year
  Sex: Male
  Weight: 68 kg

DRUGS (5)
  1. ERBITUX [Suspect]
     Indication: COLORECTAL CANCER METASTATIC
  2. BENADRYL [Concomitant]
     Indication: PREMEDICATION
     Route: 042
  3. COUMADIN [Concomitant]
  4. LOMOTIL [Concomitant]
  5. COMPAZINE [Concomitant]

REACTIONS (1)
  - APPLICATION SITE REACTION [None]
